FAERS Safety Report 8835935 (Version 1)
Quarter: 2012Q4

REPORT INFORMATION
  Report Type: 
  Country: US (occurrence: US)
  Receive Date: 20121011
  Receipt Date: 20121011
  Transmission Date: 20130627
  Serious: No
  Sender: FDA-Public Use
  Company Number: US-PFIZER INC-2012248260

PATIENT
  Age: 48 Year
  Sex: Female

DRUGS (13)
  1. PRISTIQ [Suspect]
     Indication: MOOD ALTERED
     Dosage: 50 mg, 1x/day
     Route: 048
     Dates: start: 20100816
  2. PRISTIQ [Suspect]
     Dosage: 50mg, 2 tablets daily
     Route: 048
  3. ABILIFY [Concomitant]
     Indication: DEPRESSION
     Dosage: 2.5 mg, 1x/day
     Route: 048
     Dates: start: 20120111
  4. ALPRAZOLAM [Concomitant]
     Indication: ANXIETY
     Dosage: 1 mg, 3x/day as needed
     Route: 048
     Dates: start: 20120426
  5. ASACOL [Concomitant]
     Dosage: UNK
  6. MULTIVITAMINS [Concomitant]
     Dosage: UNK
  7. CYCLOBENZAPRINE [Concomitant]
     Indication: MUSCLE RELAXANT THERAPY
     Dosage: UNK
  8. EQUATE [Concomitant]
     Dosage: UNK
  9. EXCEDRIN MIGRAINE [Concomitant]
     Dosage: UNK
  10. HYDROCODONE W/ACETAMINOPHEN [Concomitant]
     Indication: PAIN
     Dosage: UNK
  11. MERCAPTOPURINE [Concomitant]
     Dosage: UNK
  12. METOCLOPRAMIDE [Concomitant]
     Dosage: UNK
  13. NEXIUM [Concomitant]
     Dosage: UNK

REACTIONS (2)
  - Ear infection [Unknown]
  - Oral infection [Unknown]
